FAERS Safety Report 4679074-9 (Version None)
Quarter: 2005Q2

REPORT INFORMATION
  Report Type: 
  Country: None (occurrence: None)
  Receive Date: 20050527
  Receipt Date: 20050216
  Transmission Date: 20051028
  Serious: No
  Sender: FDA-Public Use
  Company Number: PHEH2004US13529

PATIENT
  Age: 63 Year
  Sex: Female

DRUGS (7)
  1. ZELNORM [Suspect]
     Indication: IRRITABLE BOWEL SYNDROME
     Dosage: 6 MG, BID
     Dates: start: 20040801
  2. AMITRIPTYLINE HCL [Concomitant]
  3. CYCLOBENZAPRINE HCL [Concomitant]
  4. HYOSCYAMINE (HYOSCYAMINE) [Concomitant]
  5. PRILOSEC [Concomitant]
  6. TRAMADOL HCL [Concomitant]
  7. LAXATIVES (NO INGREDIENTS/SUBSTANCES) [Concomitant]

REACTIONS (2)
  - ALOPECIA [None]
  - PAIN [None]
